FAERS Safety Report 15262594 (Version 1)
Quarter: 2018Q3

REPORT INFORMATION
  Report Type: Spontaneous
  Country: US (occurrence: US)
  Receive Date: 20180809
  Receipt Date: 20180809
  Transmission Date: 20181010
  Serious: No
  Sender: FDA-Public Use
  Company Number: US-NEOS THERAPEUTICS, LP-2018NEO00084

PATIENT
  Age: 6 Year
  Sex: Male
  Weight: 15.42 kg

DRUGS (4)
  1. ADZENYS XR?ODT [Suspect]
     Active Substance: AMPHETAMINE
     Dosage: 6.3 MG, 1X/DAY
     Route: 048
     Dates: end: 201802
  2. ADZENYS XR?ODT [Suspect]
     Active Substance: AMPHETAMINE
     Indication: ATTENTION DEFICIT/HYPERACTIVITY DISORDER
     Dosage: 9.4 MG, 1X/DAY
     Route: 048
     Dates: start: 2017
  3. ADZENYS XR?ODT [Suspect]
     Active Substance: AMPHETAMINE
     Dosage: 9.4 MG, 1X/DAY
     Route: 048
     Dates: start: 201802
  4. ADZENYS XR?ODT [Suspect]
     Active Substance: AMPHETAMINE
     Indication: ATTENTION DEFICIT/HYPERACTIVITY DISORDER
     Dosage: 6.3 MG, 1X/DAY
     Route: 048
     Dates: start: 201711

REACTIONS (4)
  - Impulsive behaviour [Recovering/Resolving]
  - Anger [Recovered/Resolved]
  - Impaired reasoning [Recovered/Resolved]
  - Aggression [Recovered/Resolved]

NARRATIVE: CASE EVENT DATE: 201802
